FAERS Safety Report 11862698 (Version 3)
Quarter: 2017Q2

REPORT INFORMATION
  Report Type: Spontaneous
  Country: US (occurrence: US)
  Receive Date: 20151223
  Receipt Date: 20170415
  Transmission Date: 20170829
  Serious: Yes (Other)
  Sender: FDA-Public Use
  Company Number: US-AUROBINDO-AUR-APU-2015-11496

PATIENT

DRUGS (2)
  1. GLYBURIDE 5 MG [Suspect]
     Active Substance: GLYBURIDE
     Dosage: 10 MG, UNK
     Route: 065
  2. GLYBURIDE 5 MG [Suspect]
     Active Substance: GLYBURIDE
     Indication: DIABETES MELLITUS
     Dosage: 5 MG, UNK
     Route: 065
     Dates: start: 2008

REACTIONS (4)
  - Diabetes mellitus [Unknown]
  - Vision blurred [Unknown]
  - Blood glucose increased [Unknown]
  - Drug ineffective [Unknown]
